FAERS Safety Report 8470696-6 (Version None)
Quarter: 2012Q2

REPORT INFORMATION
  Report Type: 
  Country: None (occurrence: None)
  Receive Date: 20120627
  Receipt Date: 20120622
  Transmission Date: 20120825
  Serious: Yes (Other)
  Sender: FDA-Public Use
  Company Number: US-PFIZER INC-2011041026

PATIENT
  Sex: Female
  Weight: 52.154 kg

DRUGS (4)
  1. VENLAFAXINE HCL [Suspect]
     Indication: DEPRESSION
     Dosage: 75 MG, 2X/DAY
     Dates: start: 20120401, end: 20120401
  2. AVAPRO [Concomitant]
     Indication: HYPERTENSION
     Dosage: 150 MG, 1X/DAY
  3. EFFEXOR XR [Suspect]
     Indication: DEPRESSION
     Dosage: 75 MG, 2X/DAY
     Route: 048
     Dates: start: 19960901, end: 20120301
  4. PREMARIN [Concomitant]
     Indication: HORMONE THERAPY
     Dosage: 0.3 MG, DAILY
     Dates: start: 19960901

REACTIONS (6)
  - ACTIVITIES OF DAILY LIVING IMPAIRED [None]
  - SUICIDAL IDEATION [None]
  - COORDINATION ABNORMAL [None]
  - CRYING [None]
  - THINKING ABNORMAL [None]
  - DRUG WITHDRAWAL SYNDROME [None]
